FAERS Safety Report 10311550 (Version 1)
Quarter: 2014Q3

REPORT INFORMATION
  Report Type: Report from Study
  Country: BR (occurrence: BR)
  Receive Date: 20140717
  Receipt Date: 20140717
  Transmission Date: 20150326
  Serious: Yes (Other)
  Sender: FDA-Public Use
  Company Number: PHHY2014BR086415

PATIENT
  Sex: Female

DRUGS (1)
  1. NEOTIAPIM [Suspect]
     Active Substance: QUETIAPINE

REACTIONS (2)
  - Inflammatory bowel disease [Unknown]
  - Abdominal pain [Unknown]
